FAERS Safety Report 25929931 (Version 1)
Quarter: 2025Q4

REPORT INFORMATION
  Report Type: Spontaneous
  Country: US (occurrence: None)
  Receive Date: 20251015
  Receipt Date: 20251015
  Transmission Date: 20260118
  Serious: Yes (Other)
  Sender: FDA-CTU
  Company Number: None

PATIENT
  Age: 82 Year
  Sex: Male

DRUGS (11)
  1. MYCOPHENOLIC ACID [Suspect]
     Active Substance: MYCOPHENOLIC ACID
     Indication: Renal transplant
     Dosage: FREQUENCY : TWICE A DAY;?
     Route: 048
     Dates: start: 20250218, end: 20251008
  2. ASPIRIN [Concomitant]
     Active Substance: ASPIRIN
  3. CALCITRIOL [Concomitant]
     Active Substance: CALCITRIOL
     Dates: start: 20250218
  4. FAMOTIDINE [Concomitant]
     Active Substance: FAMOTIDINE
  5. insulin aspart flexpen U-100 [Concomitant]
  6. insulin glargine-YFGN flexpen U-100 [Concomitant]
  7. LOKELMA [Concomitant]
     Active Substance: SODIUM ZIRCONIUM CYCLOSILICATE
  8. METOPROLOL SUCCINATE [Concomitant]
     Active Substance: METOPROLOL SUCCINATE
  9. NIFEDIPINE [Concomitant]
     Active Substance: NIFEDIPINE
  10. ROSUVASTATIN [Concomitant]
     Active Substance: ROSUVASTATIN
  11. VALGANCICLOVIR [Concomitant]
     Active Substance: VALGANCICLOVIR

REACTIONS (3)
  - Malignant melanoma [None]
  - Renal transplant [None]
  - Therapy cessation [None]

NARRATIVE: CASE EVENT DATE: 20250929
